FAERS Safety Report 6840599-9 (Version None)
Quarter: 2010Q3

REPORT INFORMATION
  Report Type: 
  Country: None (occurrence: None)
  Receive Date: 20100714
  Receipt Date: 20100705
  Transmission Date: 20110219
  Serious: Yes (Hospitalization)
  Sender: FDA-Public Use
  Company Number: B0664906A

PATIENT
  Sex: Female

DRUGS (8)
  1. ZINACEF [Suspect]
     Indication: INFECTION PROPHYLAXIS
     Dosage: 1.5G THREE TIMES PER DAY
     Route: 042
     Dates: start: 20100421, end: 20100424
  2. KEFEXIN [Suspect]
     Indication: INFECTION PROPHYLAXIS
     Dosage: 500MG THREE TIMES PER DAY
     Route: 065
  3. GEFILUS [Concomitant]
  4. FURESIS [Concomitant]
  5. CARDACE [Concomitant]
  6. PULMICORT [Concomitant]
  7. SIMVASTATIN [Concomitant]
  8. MAREVAN [Concomitant]

REACTIONS (11)
  - ASTHMA [None]
  - BLISTER [None]
  - BLOOD GLUCOSE INCREASED [None]
  - BLOOD PRESSURE INCREASED [None]
  - EOSINOPHIL COUNT INCREASED [None]
  - LYMPHOPENIA [None]
  - NEUTROPHILIA [None]
  - PEMPHIGOID [None]
  - PRURITUS [None]
  - SWELLING [None]
  - ULCER [None]
